FAERS Safety Report 18607268 (Version 1)
Quarter: 2020Q4

REPORT INFORMATION
  Report Type: Spontaneous
  Country: CA (occurrence: CA)
  Receive Date: 20201211
  Receipt Date: 20201211
  Transmission Date: 20210114
  Serious: Yes (Other)
  Sender: FDA-Public Use
  Company Number: CA-BAYER-2020-266678

PATIENT
  Age: 73 Year
  Sex: Female

DRUGS (20)
  1. ADEMPAS [Suspect]
     Active Substance: RIOCIGUAT
     Indication: PULMONARY ARTERIAL HYPERTENSION
     Dosage: 2.0 MG, TID
     Route: 048
  2. UPTRAVI [Suspect]
     Active Substance: SELEXIPAG
     Indication: PULMONARY ARTERIAL HYPERTENSION
     Dosage: 600 MG, BID
     Route: 048
  3. GLUCOSAMINE [Concomitant]
     Active Substance: GLUCOSAMINE
     Dosage: UNK
     Route: 065
  4. TRACLEER [Suspect]
     Active Substance: BOSENTAN
     Indication: PULMONARY ARTERIAL HYPERTENSION
     Dosage: 125 MG, BID
     Route: 048
  5. PANTOLOC [PANTOPRAZOLE] [Concomitant]
     Active Substance: PANTOPRAZOLE SODIUM
     Dosage: UNK
     Route: 065
  6. UPTRAVI [Suspect]
     Active Substance: SELEXIPAG
     Indication: PULMONARY ARTERIAL HYPERTENSION
     Dosage: 1000 MG, BID
     Route: 048
  7. UPTRAVI [Suspect]
     Active Substance: SELEXIPAG
     Indication: PULMONARY ARTERIAL HYPERTENSION
     Dosage: 200 MG, BID
     Route: 048
  8. SALBUTAMOL [Concomitant]
     Active Substance: ALBUTEROL
     Route: 065
  9. ASCORBIC ACID. [Concomitant]
     Active Substance: ASCORBIC ACID
  10. ERGOCALCIFEROL. [Concomitant]
     Active Substance: ERGOCALCIFEROL
     Route: 065
  11. FOLIC ACID. [Concomitant]
     Active Substance: FOLIC ACID
     Dosage: UNK
     Route: 065
  12. SYNTHROID [Concomitant]
     Active Substance: LEVOTHYROXINE SODIUM
     Dosage: UNK
     Route: 065
  13. UPTRAVI [Suspect]
     Active Substance: SELEXIPAG
     Indication: PULMONARY ARTERIAL HYPERTENSION
     Dosage: 800 MG, BID
     Route: 048
  14. ASA [Concomitant]
     Active Substance: ASPIRIN
     Dosage: UNK
     Route: 065
  15. CALCIUM GLUCONATE. [Concomitant]
     Active Substance: CALCIUM GLUCONATE
     Route: 065
  16. PERINDOPRIL [Concomitant]
     Active Substance: PERINDOPRIL
     Route: 065
  17. POLYSACCHARIDE-IRON COMPLEX [Concomitant]
     Active Substance: FERRIC POLYSACCHARIDE COMPLEX
     Route: 065
  18. LASIX [Concomitant]
     Active Substance: FUROSEMIDE
     Route: 065
  19. SENOKOT [Concomitant]
     Active Substance: SENNOSIDES
     Route: 065
  20. SPIRIVA [Concomitant]
     Active Substance: TIOTROPIUM BROMIDE MONOHYDRATE
     Dosage: UNK
     Route: 065

REACTIONS (13)
  - Knee operation [None]
  - Unevaluable event [None]
  - Chronic obstructive pulmonary disease [None]
  - Fatigue [None]
  - Nausea [None]
  - Arthralgia [None]
  - Cough [None]
  - Musculoskeletal discomfort [None]
  - Blood pressure systolic decreased [None]
  - Heart rate increased [None]
  - Dyspnoea [None]
  - Myalgia [None]
  - Nasopharyngitis [None]
